FAERS Safety Report 4480340-0 (Version None)
Quarter: 2004Q3

REPORT INFORMATION
  Report Type: 
  Country: None (occurrence: None)
  Receive Date: 20040923
  Receipt Date: 20040621
  Transmission Date: 20050211
  Serious: No
  Sender: FDA-Public Use
  Company Number: USA040567832

PATIENT
  Age: 78 Year
  Sex: Female
  Weight: 50 kg

DRUGS (7)
  1. FORTEO [Suspect]
     Indication: OSTEOPOROSIS
     Dosage: 20 UG/1 DAY
     Dates: end: 20030801
  2. FIORICET [Concomitant]
  3. LOTENSIN [Concomitant]
  4. ACETYLSALICYLIC ACID SRT [Concomitant]
  5. NORVASC [Concomitant]
  6. LEVOXYL [Concomitant]
  7. XALATAN [Concomitant]

REACTIONS (4)
  - ASTHENIA [None]
  - FATIGUE [None]
  - HERPES ZOSTER [None]
  - ORAL PAIN [None]
